FAERS Safety Report 17292141 (Version 1)
Quarter: 2020Q1

REPORT INFORMATION
  Report Type: Spontaneous
  Country: US (occurrence: US)
  Receive Date: 20191231
  Receipt Date: 20191231
  Transmission Date: 20200409
  Serious: No
  Sender: FDA-Public Use
  Company Number: None

PATIENT
  Age: 76 Year
  Sex: Female
  Weight: 86.18 kg

DRUGS (7)
  1. ACETAMINOPHEN. [Concomitant]
     Active Substance: ACETAMINOPHEN
  2. METOPROLOL. [Concomitant]
     Active Substance: METOPROLOL
  3. MULTI-VITAMIN [Concomitant]
     Active Substance: .ALPHA.-TOCOPHEROL ACETATE, DL-\ASCORBIC ACID\CYANOCOBALAMIN\FLUORIDE ION\FOLIC ACID\NIACIN\PYRIDOXINE\RIBOFLAVIN\THIAMINE\VITAMIN A\VITAMIN D
  4. ATORVASTATIN [Concomitant]
     Active Substance: ATORVASTATIN
  5. MULTAQ [Suspect]
     Active Substance: DRONEDARONE
     Indication: ATRIAL FIBRILLATION
     Dosage: ?          QUANTITY:ONE;?
     Route: 048
     Dates: start: 20191001, end: 20191121
  6. LISINOPRIL. [Concomitant]
     Active Substance: LISINOPRIL
  7. XARELTO [Concomitant]
     Active Substance: RIVAROXABAN

REACTIONS (3)
  - Pruritus [None]
  - Heart rate decreased [None]
  - Rash [None]

NARRATIVE: CASE EVENT DATE: 20191112
